FAERS Safety Report 8387412-9 (Version None)
Quarter: 2012Q2

REPORT INFORMATION
  Report Type: 
  Country: None (occurrence: None)
  Receive Date: 20120525
  Receipt Date: 20120521
  Transmission Date: 20120825
  Serious: Yes (Hospitalization)
  Sender: FDA-Public Use
  Company Number: CH-BRACCO-000078

PATIENT
  Age: 56 Year
  Sex: Female

DRUGS (5)
  1. IOPAMIDOL [Suspect]
     Indication: ARTERIAL STENT INSERTION
     Route: 013
  2. HEPARIN [Concomitant]
  3. ASPIRIN [Concomitant]
     Indication: PLATELET AGGREGATION INHIBITION
  4. CLOPIDOGREL [Concomitant]
     Indication: PLATELET AGGREGATION INHIBITION
  5. IOPAMIDOL [Suspect]
     Indication: SUBCLAVIAN ARTERY OCCLUSION
     Route: 013

REACTIONS (3)
  - CEREBRAL HAEMORRHAGE [None]
  - EXTRAVASATION [None]
  - CEREBRAL HYPERPERFUSION SYNDROME [None]
